FAERS Safety Report 7693960-7 (Version None)
Quarter: 2011Q3

REPORT INFORMATION
  Report Type: 
  Country: None (occurrence: None)
  Receive Date: 20110816
  Receipt Date: 20110802
  Transmission Date: 20111222
  Serious: Yes (Other)
  Sender: FDA-Public Use
  Company Number: 1000022749

PATIENT
  Age: 70 Year
  Sex: Female

DRUGS (5)
  1. ZOMETA (ZOLEDRONIC ACID) (ZOLEDRONIC ACID) [Concomitant]
  2. LERCANIDIPINE [Suspect]
     Dosage: 5 MG (5 MG,1 IN 1 D)
     Dates: start: 20100201, end: 20100327
  3. CRESTOR [Suspect]
     Dates: start: 20100201, end: 20100323
  4. COZAAR (LOSARATN POTASSIUM) (LOSARTAN POTASSIUM) [Concomitant]
  5. NEBIVOLOL HCL [Suspect]
     Dosage: 5 MG (5 MG,1 IN 1 D),ORAL
     Route: 048
     Dates: start: 20100201, end: 20100327

REACTIONS (1)
  - DRUG RASH WITH EOSINOPHILIA AND SYSTEMIC SYMPTOMS [None]
